FAERS Safety Report 8535542-0 (Version None)
Quarter: 2012Q3

REPORT INFORMATION
  Report Type: 
  Country: None (occurrence: None)
  Receive Date: 20120717
  Receipt Date: 20120717
  Transmission Date: 20120928
  Serious: Yes (Hospitalization)
  Sender: FDA-Public Use
  Company Number: None

PATIENT
  Age: 58 Year
  Sex: Male
  Weight: 59.7 kg

DRUGS (2)
  1. NITROGLYCERIN [Suspect]
     Indication: CHEST PAIN
     Dosage: 0.4 MG PRN SUBLINGUAL
     Route: 060
     Dates: start: 19950203, end: 20081224
  2. SILDENAFIL [Suspect]
     Indication: ERECTILE DYSFUNCTION
     Dosage: 50 MG PRN PO
     Route: 048
     Dates: start: 20120326, end: 20120517

REACTIONS (2)
  - BLOOD PRESSURE DECREASED [None]
  - SYNCOPE [None]
